FAERS Safety Report 4723483-6 (Version None)
Quarter: 2005Q3

REPORT INFORMATION
  Report Type: 
  Country: None (occurrence: None)
  Receive Date: 20050725
  Receipt Date: 20050718
  Transmission Date: 20060218
  Serious: Yes (Death, Hospitalization)
  Sender: FDA-Public Use
  Company Number: FR-GLAXOSMITHKLINE-B0388350A

PATIENT
  Age: 82 Year
  Sex: Male

DRUGS (16)
  1. CEFUROXIME AXETIL [Suspect]
     Indication: SUPERINFECTION LUNG
     Dosage: 1UNIT TWICE PER DAY
     Route: 048
     Dates: start: 20050429, end: 20050511
  2. PLAVIX [Suspect]
     Dosage: 1UNIT PER DAY
     Route: 048
     Dates: start: 19950101, end: 20050522
  3. LAROXYL DROPS [Suspect]
     Indication: FACIAL NEURALGIA
     Dosage: 7UNIT PER DAY
     Route: 048
     Dates: end: 20050522
  4. KARDEGIC [Concomitant]
     Route: 048
     Dates: start: 20040701
  5. LASILIX 40 MG [Concomitant]
     Route: 048
     Dates: start: 20040101
  6. CHIBROCADRON [Concomitant]
     Route: 065
  7. NITRIDERM 5 MG [Concomitant]
     Route: 050
  8. PULMICORT [Concomitant]
     Route: 055
  9. SURBRONC [Concomitant]
     Route: 048
     Dates: start: 20050422
  10. SILOMAT [Concomitant]
     Route: 048
     Dates: start: 20050422
  11. VENTOLIN [Concomitant]
     Route: 055
     Dates: start: 20050429
  12. QVAR 40 [Concomitant]
     Route: 055
     Dates: start: 20050510
  13. ERYTHROMYCIN [Concomitant]
     Route: 065
     Dates: start: 20050329, end: 20050415
  14. CIFLOX [Concomitant]
     Route: 065
     Dates: start: 20050329, end: 20050415
  15. ACETAMINOPHEN [Concomitant]
     Route: 065
  16. ELAVIL [Concomitant]
     Dosage: 25MG PER DAY
     Route: 048
     Dates: start: 20050401, end: 20050419

REACTIONS (14)
  - ALANINE AMINOTRANSFERASE INCREASED [None]
  - ASPARTATE AMINOTRANSFERASE INCREASED [None]
  - BLOOD BILIRUBIN INCREASED [None]
  - CARDIAC FAILURE [None]
  - FACTOR II DEFICIENCY [None]
  - FACTOR V DEFICIENCY [None]
  - FACTOR VII DEFICIENCY [None]
  - GAMMA-GLUTAMYLTRANSFERASE INCREASED [None]
  - HEPATIC FAILURE [None]
  - PERIPHERAL ISCHAEMIA [None]
  - PERITONEAL EFFUSION [None]
  - PLATELET COUNT DECREASED [None]
  - PLEURAL EFFUSION [None]
  - PROTHROMBIN TIME RATIO DECREASED [None]
